FAERS Safety Report 6496203-5 (Version None)
Quarter: 2009Q4

REPORT INFORMATION
  Report Type: 
  Country: None (occurrence: None)
  Receive Date: 20091214
  Receipt Date: 20091022
  Transmission Date: 20100525
  Serious: No
  Sender: FDA-Public Use
  Company Number: US-BRISTOL-MYERS SQUIBB COMPANY-14826465

PATIENT
  Age: 44 Year
  Sex: Female
  Weight: 102 kg

DRUGS (9)
  1. ABILIFY [Suspect]
     Indication: PSYCHOTIC DISORDER
     Dosage: TAKEN FOR 1.5 YEARS
  2. DEPAKOTE [Concomitant]
     Dates: start: 19880101
  3. HALDOL [Concomitant]
  4. PREMARIN [Concomitant]
  5. PROTONIX [Concomitant]
  6. DICYCLOMINE [Concomitant]
  7. LUVOX [Concomitant]
  8. ASPIRIN [Concomitant]
  9. ATENOLOL [Concomitant]

REACTIONS (3)
  - AMMONIA INCREASED [None]
  - AMNESIA [None]
  - COORDINATION ABNORMAL [None]
